FAERS Safety Report 7053254-X (Version None)
Quarter: 2010Q4

REPORT INFORMATION
  Report Type: 
  Country: None (occurrence: None)
  Receive Date: 20101020
  Receipt Date: 20100928
  Transmission Date: 20110411
  Serious: Yes (Hospitalization, Other)
  Sender: FDA-Public Use
  Company Number: CA-ASTRAZENECA-2010SE45794

PATIENT
  Age: 49 Year
  Sex: Male

DRUGS (1)
  1. SEROQUEL [Suspect]
     Route: 048

REACTIONS (10)
  - ABNORMAL BEHAVIOUR [None]
  - AGGRESSION [None]
  - DELUSION [None]
  - ERECTILE DYSFUNCTION [None]
  - FACTITIOUS DISORDER [None]
  - HALLUCINATION, AUDITORY [None]
  - INSOMNIA [None]
  - MAJOR DEPRESSION [None]
  - PANIC ATTACK [None]
  - PHYSICAL ASSAULT [None]
